FAERS Safety Report 18170079 (Version 1)
Quarter: 2020Q3

REPORT INFORMATION
  Report Type: Spontaneous
  Country: US (occurrence: US)
  Receive Date: 20200819
  Receipt Date: 20200819
  Transmission Date: 20201103
  Serious: Yes (Hospitalization)
  Sender: FDA-Public Use
  Company Number: None

PATIENT
  Age: 75 Year
  Sex: Female
  Weight: 51.3 kg

DRUGS (1)
  1. CEFEPIME [Suspect]
     Active Substance: CEFEPIME HYDROCHLORIDE
     Indication: NEPHROLITHIASIS
     Route: 042
     Dates: start: 20200714, end: 20200811

REACTIONS (3)
  - Swelling of eyelid [None]
  - Lip swelling [None]
  - Vision blurred [None]

NARRATIVE: CASE EVENT DATE: 20200808
